FAERS Safety Report 7379966-6 (Version None)
Quarter: 2011Q1

REPORT INFORMATION
  Report Type: 
  Country: None (occurrence: None)
  Receive Date: 20110329
  Receipt Date: 20110317
  Transmission Date: 20110831
  Serious: Yes (Hospitalization)
  Sender: FDA-Public Use
  Company Number: PHHY2011US21836

PATIENT
  Sex: Female

DRUGS (5)
  1. KEPPRA [Concomitant]
  2. AMITIZA [Suspect]
     Indication: CONSTIPATION
     Dosage: 24 UG, BID
     Dates: start: 20090101
  3. AMITIZA [Suspect]
     Dosage: 8 UG, BID
  4. AMITIZA [Suspect]
     Dosage: 24 UG, BID
  5. TEGRETOL [Suspect]
     Indication: CONVULSION

REACTIONS (5)
  - APHASIA [None]
  - HYPERSENSITIVITY [None]
  - INFECTION [None]
  - DIARRHOEA [None]
  - ANTICONVULSANT DRUG LEVEL ABNORMAL [None]
